FAERS Safety Report 24349250 (Version 1)
Quarter: 2024Q3

REPORT INFORMATION
  Report Type: Spontaneous
  Country: TN (occurrence: TN)
  Receive Date: 20240923
  Receipt Date: 20240923
  Transmission Date: 20241017
  Serious: Yes (Hospitalization, Disabling, Other)
  Sender: MICRO LABS
  Company Number: TN-862174955-ML2024-04915

PATIENT
  Age: 64 Year
  Sex: Female

DRUGS (2)
  1. METFORMIN [Suspect]
     Active Substance: METFORMIN HYDROCHLORIDE
     Indication: Type 2 diabetes mellitus
     Dosage: UNDER METFORMIN FOR 30 YEARS AT A DAILY DOSE OF 1700 MG, AND INSULIN FOR 5 YEARS
  2. INSULIN NOS [Concomitant]
     Active Substance: INSULIN NOS
     Indication: Type 2 diabetes mellitus
     Dosage: UNDER METFORMIN FOR 30 YEARS AT A DAILY DOSE OF 1700 MG, AND INSULIN FOR 5 YEARS

REACTIONS (5)
  - Frontotemporal dementia [Recovering/Resolving]
  - Microcytic anaemia [Unknown]
  - Epilepsy [Recovered/Resolved]
  - Urinary incontinence [Unknown]
  - Vitamin B12 deficiency [Recovering/Resolving]
